FAERS Safety Report 8859939 (Version 2)
Quarter: 2012Q4

REPORT INFORMATION
  Report Type: 
  Country: US (occurrence: US)
  Receive Date: 20121025
  Receipt Date: 20121213
  Transmission Date: 20130627
  Serious: Yes (Death)
  Sender: FDA-Public Use
  Company Number: US-BRISTOL-MYERS SQUIBB COMPANY-17045543

PATIENT
  Age: 50 Year
  Sex: Male

DRUGS (2)
  1. BARACLUDE [Suspect]
     Indication: CHRONIC HEPATITIS B
     Route: 048
     Dates: start: 20110722
  2. DILTIAZEM HCL [Concomitant]

REACTIONS (1)
  - Death [Fatal]
